FAERS Safety Report 15289248 (Version 1)
Quarter: 2018Q3

REPORT INFORMATION
  Report Type: Report from Study
  Country: US (occurrence: ZA)
  Receive Date: 20180817
  Receipt Date: 20180817
  Transmission Date: 20181010
  Serious: Yes (Hospitalization)
  Sender: FDA-Public Use
  Company Number: US-SUNOVION-2018SUN003155

PATIENT
  Sex: Female

DRUGS (4)
  1. GLYCOPYRROLATE. [Suspect]
     Active Substance: GLYCOPYRROLATE
     Indication: PRODUCT USED FOR UNKNOWN INDICATION
     Dosage: 50 UG, UNK;REGIMEN #1
     Route: 055
     Dates: start: 201806
  2. HEXARONE [Suspect]
     Active Substance: AMIODARONE
     Indication: ARRHYTHMIA
     Dosage: 200 MG, UNK;REGIMEN #1
     Route: 048
     Dates: start: 201806
  3. VERAHEXAL [Suspect]
     Active Substance: VERAPAMIL HYDROCHLORIDE
     Indication: HYPERTENSION
     Dosage: 240 MG, UNK;REGIMEN #1
     Route: 048
     Dates: start: 201802
  4. INDACATEROL [Suspect]
     Active Substance: INDACATEROL
     Indication: PRODUCT USED FOR UNKNOWN INDICATION
     Dosage: 150 UG, UNK;REGIMEN #1
     Route: 055
     Dates: start: 201806

REACTIONS (1)
  - Limb discomfort [Unknown]
